FAERS Safety Report 8843787 (Version 1)
Quarter: 2012Q4

REPORT INFORMATION
  Report Type: 
  Country: US (occurrence: US)
  Receive Date: 20121016
  Receipt Date: 20121016
  Transmission Date: 20130627
  Serious: No
  Sender: FDA-Public Use
  Company Number: US-VERTEX PHARMACEUTICAL INC.-2012-022285

PATIENT
  Age: 53 Year
  Sex: Female
  Weight: 83 kg

DRUGS (8)
  1. INCIVEK [Suspect]
     Indication: HEPATITIS C
     Dosage: 750 mg, tid
     Route: 048
     Dates: start: 20120928
  2. RIBAVIRIN [Suspect]
     Indication: HEPATITIS C
     Dosage: 600 mg, qd
     Route: 048
     Dates: start: 20120928
  3. PEGASYS [Suspect]
     Indication: HEPATITIS C
     Dosage: 180 ?g, UNK
     Route: 058
     Dates: start: 20120928
  4. MORPHINE [Concomitant]
     Indication: PAIN
     Dosage: 90 mg, qd
     Route: 048
  5. OXYCOTIN [Concomitant]
     Indication: PAIN
     Dosage: 90 mg, qd
     Route: 048
  6. XANAX [Concomitant]
  7. LAMACTAL [Concomitant]
     Indication: BIPOLAR DISORDER
  8. TOPAMAX [Concomitant]
     Indication: BIPOLAR DISORDER

REACTIONS (3)
  - Dyspnoea [Not Recovered/Not Resolved]
  - Fatigue [Not Recovered/Not Resolved]
  - Pruritus generalised [Not Recovered/Not Resolved]
